FAERS Safety Report 10947635 (Version 1)
Quarter: 2015Q1

REPORT INFORMATION
  Report Type: Spontaneous
  Country: US (occurrence: None)
  Receive Date: 20150212
  Receipt Date: 20150212
  Transmission Date: 20150721
  Serious: No
  Sender: FDA-Public Use
  Company Number: TPA2011A07236

PATIENT
  Age: 69 Year
  Sex: Male
  Weight: 86.18 kg

DRUGS (5)
  1. ULORIC [Suspect]
     Active Substance: FEBUXOSTAT
     Indication: BLOOD URIC ACID INCREASED
     Dosage: 1 IN 1 D
     Route: 048
  2. FINASTERIDE. [Concomitant]
     Active Substance: FINASTERIDE
  3. DILTIAZEM [Concomitant]
     Active Substance: DILTIAZEM
  4. WARFARIN [Concomitant]
     Active Substance: WARFARIN
  5. WELCHOL (COLESEVELAM HYDROCHLORIDE) [Concomitant]

REACTIONS (4)
  - Burning sensation [None]
  - Hypoaesthesia [None]
  - Gout [None]
  - Paraesthesia [None]

NARRATIVE: CASE EVENT DATE: 2011
